FAERS Safety Report 6469277-5 (Version None)
Quarter: 2009Q4

REPORT INFORMATION
  Report Type: 
  Country: None (occurrence: None)
  Receive Date: 20091203
  Receipt Date: 20071009
  Transmission Date: 20100525
  Serious: Yes (Hospitalization)
  Sender: FDA-Public Use
  Company Number: US-ELI_LILLY_AND_COMPANY-US200707005318

PATIENT
  Sex: Female
  Weight: 145.13 kg

DRUGS (1)
  1. OLANZAPINE [Suspect]

REACTIONS (4)
  - CELLULITIS [None]
  - DIABETES MELLITUS [None]
  - HYPERINSULINISM [None]
  - WEIGHT INCREASED [None]
